FAERS Safety Report 10055869 (Version 1)
Quarter: 2014Q2

REPORT INFORMATION
  Report Type: Spontaneous
  Country: IT (occurrence: IT)
  Receive Date: 20140403
  Receipt Date: 20140403
  Transmission Date: 20141212
  Serious: Yes (Death, Other)
  Sender: FDA-Public Use
  Company Number: PHHY2014IT038824

PATIENT
  Age: 61 Year
  Sex: Male

DRUGS (7)
  1. GLIVEC [Suspect]
     Indication: GASTROINTESTINAL STROMAL TUMOUR
     Dosage: 400 MG PER DAY
  2. GLIVEC [Suspect]
     Dosage: 800 MG PER DAY
  3. GLIVEC [Suspect]
     Dosage: 800 MG PER DAY
  4. GLIVEC [Suspect]
     Dosage: 400 MG PER DAY
     Dates: start: 201106
  5. SUNITINIB [Suspect]
     Dosage: 37.5 MG PER DAY
  6. SUNITINIB [Suspect]
     Dosage: 37.5 MG PER DAY
     Dates: start: 201108
  7. REGORAFENIB [Suspect]
     Dosage: 160 MG PER DAY

REACTIONS (3)
  - Death [Fatal]
  - Gastrointestinal stromal tumour [Not Recovered/Not Resolved]
  - Malignant neoplasm progression [Not Recovered/Not Resolved]
